FAERS Safety Report 7381314-2 (Version None)
Quarter: 2011Q1

REPORT INFORMATION
  Report Type: 
  Country: None (occurrence: None)
  Receive Date: 20110323
  Receipt Date: 20110323
  Transmission Date: 20110831
  Serious: Yes (Hospitalization)
  Sender: FDA-Public Use
  Company Number: None

PATIENT
  Age: 73 Year
  Sex: Male
  Weight: 76 kg

DRUGS (3)
  1. BEVACIZUMAB [Suspect]
  2. CARBOPLATIN [Suspect]
     Indication: LUNG NEOPLASM MALIGNANT
     Dosage: AUC-6
     Dates: end: 20110307
  3. PEMETREXED [Suspect]
     Indication: LUNG NEOPLASM MALIGNANT
     Dosage: 500MG/M2 IV Q3WEEKS
     Route: 042
     Dates: end: 20110307

REACTIONS (1)
  - DYSPNOEA [None]
